FAERS Safety Report 10617269 (Version 1)
Quarter: 2014Q4

REPORT INFORMATION
  Report Type: Spontaneous
  Country: US (occurrence: US)
  Receive Date: 20141201
  Receipt Date: 20141201
  Transmission Date: 20150529
  Serious: Yes (Hospitalization, Other)
  Sender: FDA-Public Use
  Company Number: US-GLAXOSMITHKLINE-US2014GSK026637

PATIENT
  Age: 65 Year
  Sex: Female

DRUGS (1)
  1. VALTREX [Suspect]
     Active Substance: VALACYCLOVIR HYDROCHLORIDE
     Indication: HERPES ZOSTER
     Dosage: 500 MG, 1D
     Dates: start: 2001

REACTIONS (6)
  - Joint prosthesis user [Not Recovered/Not Resolved]
  - Staphylococcal infection [Not Recovered/Not Resolved]
  - Lymph gland infection [Not Recovered/Not Resolved]
  - Shoulder operation [Recovered/Resolved]
  - Rehabilitation therapy [Not Recovered/Not Resolved]
  - Bacterial infection [Recovered/Resolved]

NARRATIVE: CASE EVENT DATE: 201404
